FAERS Safety Report 7687431-1 (Version None)
Quarter: 2011Q3

REPORT INFORMATION
  Report Type: 
  Country: None (occurrence: None)
  Receive Date: 20110816
  Receipt Date: 20110812
  Transmission Date: 20111222
  Serious: Yes (Death, Hospitalization, Other)
  Sender: FDA-Public Use
  Company Number: PHEH2009US00719

PATIENT
  Sex: Female

DRUGS (64)
  1. LOVENOX [Concomitant]
  2. BENADRYL ^ACHE^ [Concomitant]
  3. TOBRAMYCIN [Concomitant]
  4. MARCAINE [Concomitant]
  5. PREDNISONE [Concomitant]
  6. LEVAQUIN [Concomitant]
     Dosage: UNK
     Dates: start: 20071101, end: 20071101
  7. LIDODERM [Concomitant]
     Dosage: UNK
  8. AREDIA [Suspect]
  9. KYTRIL [Concomitant]
  10. PERIDEX [Concomitant]
  11. NYSTATIN [Concomitant]
  12. MEGACE [Concomitant]
  13. KEPPRA [Concomitant]
  14. LAMICTAL [Concomitant]
  15. DURAGESIC-100 [Concomitant]
  16. VIOXX [Concomitant]
  17. NORVASC [Concomitant]
     Dosage: 5 MG, QD
  18. TAXOTERE [Concomitant]
     Dosage: UNK
  19. COUMADIN [Concomitant]
  20. THEO-DUR [Concomitant]
  21. HALDOL [Concomitant]
     Dosage: UNK
  22. LIPITOR [Concomitant]
     Dosage: 20 MG, QD
  23. XELODA [Concomitant]
  24. DOXIL [Concomitant]
  25. DILANTIN                                /CAN/ [Concomitant]
  26. ABRAXANE [Concomitant]
  27. FLAGYL [Concomitant]
     Dosage: UNK
  28. PROVIGIL [Concomitant]
     Dosage: UNK
  29. RISPERIDONE [Concomitant]
     Dosage: 0.5 MG / TWICE DAILY
     Route: 048
  30. AVAPRO [Concomitant]
     Dosage: 300 MG, QD
  31. SYNTHROID [Concomitant]
     Dosage: 0.175 MG, QD
  32. DECADRON [Concomitant]
  33. CYMBALTA [Concomitant]
  34. MIACALCIN [Concomitant]
  35. ZITHROMAX [Concomitant]
  36. RISPERDAL [Concomitant]
     Dosage: UNK
  37. ERYTHROMYCIN [Concomitant]
     Dosage: UNK
  38. FOSAMAX [Concomitant]
     Dosage: 70 MG, QW
  39. ASPIRIN [Concomitant]
     Dosage: 81 MG, QD
  40. ARIMIDEX [Concomitant]
     Dosage: 1 MG, QD
  41. UNASYN [Concomitant]
  42. METRONIDAZOLE [Concomitant]
     Dosage: UNK
  43. ZOMETA [Suspect]
     Dosage: 4 MG, QMO
     Dates: end: 20050926
  44. RADIATION THERAPY [Concomitant]
  45. TYLENOL-500 [Concomitant]
  46. NAPROSYN [Concomitant]
  47. LIDOCAINE [Concomitant]
  48. ROXANOL [Concomitant]
  49. ZOSYN [Concomitant]
     Dosage: UNK
  50. DETROL [Concomitant]
     Dosage: UNK
  51. GUAIFENESIN DM [Concomitant]
     Dosage: 10-100MG/5ML / EVERY 4 HRS PRN
  52. SENNA [Concomitant]
     Dosage: UNK
  53. CHEMOTHERAPEUTICS NOS [Concomitant]
  54. PREVACID [Concomitant]
  55. LASIX [Concomitant]
  56. TAGAMET [Concomitant]
  57. DEPO-MEDROL + LIDOCAINE [Concomitant]
  58. GEMZAR [Concomitant]
  59. CEFTIN [Concomitant]
  60. NAVELBINE [Concomitant]
  61. ROCEPHIN [Concomitant]
  62. PERCOCET [Concomitant]
     Dosage: UNK
  63. ATIVAN [Concomitant]
     Dosage: UNK
  64. METOPROLOL TARTRATE [Concomitant]
     Dosage: 25 MG/ TWICE DAILY
     Route: 048

REACTIONS (82)
  - BONE DISORDER [None]
  - BURSITIS [None]
  - SYNOVITIS [None]
  - ONYCHOMYCOSIS [None]
  - GAIT DISTURBANCE [None]
  - HEADACHE [None]
  - PERICARDIAL EFFUSION [None]
  - ISCHAEMIA [None]
  - CELLULITIS [None]
  - PATHOLOGICAL FRACTURE [None]
  - HALLUCINATION [None]
  - UNRESPONSIVE TO STIMULI [None]
  - OSTEONECROSIS OF JAW [None]
  - CERVICAL SPINAL STENOSIS [None]
  - NAUSEA [None]
  - GINGIVAL EROSION [None]
  - PAIN IN EXTREMITY [None]
  - CANDIDIASIS [None]
  - MASS [None]
  - EPISTAXIS [None]
  - PYREXIA [None]
  - DELIRIUM [None]
  - EATING DISORDER SYMPTOM [None]
  - BRAIN SCAN ABNORMAL [None]
  - METASTASES TO LIVER [None]
  - TOOTH LOSS [None]
  - DRY MOUTH [None]
  - OEDEMA PERIPHERAL [None]
  - SYNOVIAL CYST [None]
  - SYNCOPE [None]
  - THROMBOPHLEBITIS [None]
  - DEEP VEIN THROMBOSIS [None]
  - MENISCUS LESION [None]
  - RADIUS FRACTURE [None]
  - HYPOXIA [None]
  - DYSSTASIA [None]
  - OSTEOMYELITIS [None]
  - CEREBRAL DISORDER [None]
  - DEATH [None]
  - CARDIOMEGALY [None]
  - CONVULSION [None]
  - TREMOR [None]
  - BACK PAIN [None]
  - UMBILICAL HERNIA [None]
  - COUGH [None]
  - PLEURAL EFFUSION [None]
  - POOR PERSONAL HYGIENE [None]
  - LOSS OF CONSCIOUSNESS [None]
  - METASTASES TO BONE [None]
  - CHROMATOPSIA [None]
  - FOOT DEFORMITY [None]
  - PNEUMONIA [None]
  - DEPRESSION [None]
  - MICTURITION URGENCY [None]
  - CONSTIPATION [None]
  - DENTAL CARIES [None]
  - TOOTH DISORDER [None]
  - OSTEOARTHRITIS [None]
  - RIB FRACTURE [None]
  - ATELECTASIS [None]
  - BLINDNESS UNILATERAL [None]
  - ASTHENIA [None]
  - CONFUSIONAL STATE [None]
  - LETHARGY [None]
  - DECREASED APPETITE [None]
  - LACERATION [None]
  - SWELLING [None]
  - UTERINE LEIOMYOMA [None]
  - NECK PAIN [None]
  - CONJUNCTIVITIS [None]
  - FOOT FRACTURE [None]
  - NEUROPATHY PERIPHERAL [None]
  - VEIN DISORDER [None]
  - HERPES ZOSTER [None]
  - MENTAL STATUS CHANGES [None]
  - ANXIETY [None]
  - BONE LESION [None]
  - OSTEONECROSIS [None]
  - POSITIVE ROMBERGISM [None]
  - ELECTROENCEPHALOGRAM ABNORMAL [None]
  - CSF TEST ABNORMAL [None]
  - COLONIC POLYP [None]
